FAERS Safety Report 8267714-7 (Version None)
Quarter: 2012Q2

REPORT INFORMATION
  Report Type: 
  Country: None (occurrence: None)
  Receive Date: 20120409
  Receipt Date: 20120402
  Transmission Date: 20120825
  Serious: Yes (Death, Other)
  Sender: FDA-Public Use
  Company Number: US-CELGENEUS-163-21880-12040223

PATIENT
  Age: 56 Year
  Sex: Male

DRUGS (9)
  1. PREDNISONE [Concomitant]
     Route: 065
     Dates: start: 20110901, end: 20111101
  2. PLAVIX [Concomitant]
     Route: 065
  3. REVLIMID [Suspect]
     Dosage: 10 MILLIGRAM
     Route: 048
     Dates: start: 20110401, end: 20111101
  4. REVLIMID [Suspect]
     Dosage: 25 MILLIGRAM
     Route: 048
  5. MELPHALAN HYDROCHLORIDE [Concomitant]
     Route: 065
     Dates: start: 20110901, end: 20111101
  6. ASPIRIN [Concomitant]
     Route: 065
  7. METOPROLOL TARTRATE [Concomitant]
     Route: 065
  8. SIMVASTATIN [Concomitant]
     Route: 065
  9. HERBAL MEDICATIONS [Concomitant]
     Route: 065

REACTIONS (2)
  - DISEASE PROGRESSION [None]
  - DEATH [None]
